FAERS Safety Report 8194003-1 (Version None)
Quarter: 2012Q1

REPORT INFORMATION
  Report Type: 
  Country: None (occurrence: None)
  Receive Date: 20120308
  Receipt Date: 20120229
  Transmission Date: 20120608
  Serious: Yes (Other)
  Sender: FDA-Public Use
  Company Number: US-BAYER-2011-063092

PATIENT
  Age: 26 Year
  Sex: Female
  Weight: 68 kg

DRUGS (6)
  1. IBUPROFEN [Concomitant]
     Dosage: UNK UNK, PRN
     Dates: start: 20050101
  2. BUPROPION HCL [Concomitant]
  3. DROSPIRENONE AND ETHINYL ESTRADIOL [Suspect]
     Indication: CONTRACEPTION
     Dosage: UNK
     Dates: start: 20080801, end: 20100101
  4. GABAPENTIN [Concomitant]
     Indication: NEUROPATHY PERIPHERAL
  5. CLONAZEPAM [Concomitant]
     Indication: DEPRESSION
  6. CLONAZEPAM [Concomitant]
     Indication: ANXIETY

REACTIONS (6)
  - PAIN [None]
  - CHOLECYSTITIS CHRONIC [None]
  - INJURY [None]
  - NAUSEA [None]
  - ABDOMINAL PAIN [None]
  - QUALITY OF LIFE DECREASED [None]
